FAERS Safety Report 9290761 (Version 1)
Quarter: 2013Q2

REPORT INFORMATION
  Report Type: Spontaneous
  Country: FR (occurrence: FR)
  Receive Date: 20130515
  Receipt Date: 20130515
  Transmission Date: 20140414
  Serious: Yes (Other)
  Sender: FDA-Public Use
  Company Number: PHHY2013FR046557

PATIENT
  Age: 60 Year
  Sex: Male

DRUGS (6)
  1. OXALIPLATIN [Suspect]
     Indication: CHEMOTHERAPY
     Dosage: 85 MG/M2, UNK
  2. OXALIPLATIN [Suspect]
     Indication: ADENOCARCINOMA
  3. 5-FLUOROURACIL [Suspect]
     Indication: CHEMOTHERAPY
  4. 5-FLUOROURACIL [Suspect]
     Indication: ADENOCARCINOMA
  5. CETUXIMAB [Suspect]
     Indication: CHEMOTHERAPY
  6. CETUXIMAB [Suspect]
     Indication: ADENOCARCINOMA

REACTIONS (4)
  - Nodular regenerative hyperplasia [Unknown]
  - Hepatic lesion [Unknown]
  - Jaundice [Recovering/Resolving]
  - Metastases to liver [Unknown]
